FAERS Safety Report 17659708 (Version 1)
Quarter: 2020Q2

REPORT INFORMATION
  Report Type: Spontaneous
  Country: CN (occurrence: CN)
  Receive Date: 20200413
  Receipt Date: 20200413
  Transmission Date: 20200713
  Serious: Yes (Other)
  Sender: FDA-Public Use
  Company Number: NVSC2020CN097207

PATIENT
  Age: 42 Year
  Sex: Male
  Weight: 74 kg

DRUGS (1)
  1. OCTREOTIDE ACETATE. [Suspect]
     Active Substance: OCTREOTIDE ACETATE
     Indication: PANCREATITIS ACUTE
     Dosage: 0.10 MG
     Route: 058
     Dates: start: 20200329, end: 20200329

REACTIONS (4)
  - Chest discomfort [Recovering/Resolving]
  - Hypoaesthesia oral [Recovering/Resolving]
  - Quadriparesis [Recovering/Resolving]
  - Tachypnoea [Recovering/Resolving]

NARRATIVE: CASE EVENT DATE: 20200329
